FAERS Safety Report 10923366 (Version 1)
Quarter: 2015Q1

REPORT INFORMATION
  Report Type: Spontaneous
  Country: US (occurrence: US)
  Receive Date: 20150318
  Receipt Date: 20150318
  Transmission Date: 20150721
  Serious: No
  Sender: FDA-Public Use
  Company Number: US-AMGEN-USASP2015022886

PATIENT

DRUGS (2)
  1. ENBREL [Suspect]
     Active Substance: ETANERCEPT
     Indication: ANKYLOSING SPONDYLITIS
     Dosage: UNK
     Route: 065
  2. HUMIRA [Suspect]
     Active Substance: ADALIMUMAB
     Indication: ANKYLOSING SPONDYLITIS
     Dosage: UNK
     Route: 065

REACTIONS (10)
  - Eczema [Unknown]
  - Hypersensitivity [Unknown]
  - Dry skin [Unknown]
  - Blister [Unknown]
  - Acne cystic [Unknown]
  - Feeling abnormal [Unknown]
  - Psoriasis [Unknown]
  - Dermatitis herpetiformis [Unknown]
  - Dermatitis atopic [Unknown]
  - Pustular psoriasis [Unknown]
